FAERS Safety Report 12190753 (Version 1)
Quarter: 2016Q1

REPORT INFORMATION
  Report Type: Spontaneous
  Country: US (occurrence: None)
  Receive Date: 20160317
  Receipt Date: 20160317
  Transmission Date: 20160526
  Serious: Yes (Other)
  Sender: FDA-Public Use
  Company Number: None

PATIENT
  Age: 43 Year

DRUGS (1)
  1. MIRENA [Suspect]
     Active Substance: LEVONORGESTREL

REACTIONS (14)
  - Abasia [None]
  - Spinal cord disorder [None]
  - Musculoskeletal disorder [None]
  - Muscle atrophy [None]
  - Gait disturbance [None]
  - Facial paralysis [None]
  - Dysarthria [None]
  - Bedridden [None]
  - Back pain [None]
  - Hypoaesthesia [None]
  - Paraesthesia [None]
  - Asthenia [None]
  - Vertigo [None]
  - Burning sensation [None]

NARRATIVE: CASE EVENT DATE: 20060301
